FAERS Safety Report 7902443-8 (Version None)
Quarter: 2011Q4

REPORT INFORMATION
  Report Type: 
  Country: None (occurrence: None)
  Receive Date: 20111108
  Receipt Date: 20111104
  Transmission Date: 20120403
  Serious: Yes (Death, Other)
  Sender: FDA-Public Use
  Company Number: US-AMGEN-USASP2011020348

PATIENT
  Age: 80 Year
  Sex: Male
  Weight: 83.447 kg

DRUGS (1)
  1. NPLATE [Suspect]
     Indication: IDIOPATHIC THROMBOCYTOPENIC PURPURA
     Dosage: 250 MUG, UNK
     Dates: end: 20101029

REACTIONS (2)
  - MULTI-ORGAN FAILURE [None]
  - CHRONIC LYMPHOCYTIC LEUKAEMIA [None]
